FAERS Safety Report 5449156-2 (Version None)
Quarter: 2007Q3

REPORT INFORMATION
  Report Type: 
  Country: None (occurrence: None)
  Receive Date: 20070911
  Receipt Date: 20070831
  Transmission Date: 20080115
  Serious: Yes (Hospitalization)
  Sender: FDA-Public Use
  Company Number: US-BAXTER-2007BH007516

PATIENT
  Age: 46 Year
  Sex: Female
  Weight: 70 kg

DRUGS (7)
  1. IMMUNE GLOBULIN INTRAVENOUS (HUMAN) [Suspect]
     Indication: STIFF-MAN SYNDROME
     Route: 042
     Dates: start: 20070212, end: 20070216
  2. IMMUNE GLOBULIN INTRAVENOUS (HUMAN) [Suspect]
     Indication: INTENTIONAL DRUG MISUSE
     Route: 042
     Dates: start: 20070212, end: 20070216
  3. IMMUNE GLOBULIN INTRAVENOUS (HUMAN) [Suspect]
     Route: 042
     Dates: start: 20070409, end: 20070417
  4. IMMUNE GLOBULIN INTRAVENOUS (HUMAN) [Suspect]
     Route: 042
     Dates: start: 20070409, end: 20070417
  5. SOLU-MEDROL [Concomitant]
     Indication: PREMEDICATION
     Route: 065
  6. BENADRYL ^ACHE^ [Concomitant]
     Indication: PREMEDICATION
     Route: 065
  7. TYLENOL EXTRA-STRENGTH [Concomitant]
     Indication: PREMEDICATION
     Dosage: DOSE UNIT:UNKNOWN
     Route: 065

REACTIONS (12)
  - ARTHRALGIA [None]
  - FLANK PAIN [None]
  - HEADACHE [None]
  - NAUSEA [None]
  - OEDEMA PERIPHERAL [None]
  - PNEUMONIA ASPIRATION [None]
  - PYREXIA [None]
  - RASH [None]
  - RENAL FAILURE [None]
  - SWELLING FACE [None]
  - SYNCOPE [None]
  - VOMITING [None]
